FAERS Safety Report 16370313 (Version 1)
Quarter: 2019Q2

REPORT INFORMATION
  Report Type: Spontaneous
  Country: US (occurrence: US)
  Receive Date: 20190530
  Receipt Date: 20190530
  Transmission Date: 20190711
  Serious: Yes (Other)
  Sender: FDA-Public Use
  Company Number: US-009507513-1905USA012804

PATIENT
  Age: 40 Year
  Sex: Male

DRUGS (2)
  1. PREGNYL [Suspect]
     Active Substance: CHORIOGONADOTROPIN ALFA
     Dosage: UNK
  2. PREGNYL [Suspect]
     Active Substance: CHORIOGONADOTROPIN ALFA
     Dosage: 10,000 ^U^, EVERY OTHER WEEK (QOW)
     Route: 030
     Dates: start: 20190112

REACTIONS (4)
  - Road traffic accident [Unknown]
  - Rib fracture [Unknown]
  - Lung perforation [Unknown]
  - Product dose omission [Unknown]

NARRATIVE: CASE EVENT DATE: 201902
